FAERS Safety Report 5094945-X (Version None)
Quarter: 2006Q3

REPORT INFORMATION
  Report Type: 
  Country: None (occurrence: None)
  Receive Date: 20060731
  Receipt Date: 20050525
  Transmission Date: 20061208
  Serious: Yes (Hospitalization)
  Sender: FDA-Public Use
  Company Number: 200510858BWH

PATIENT
  Age: 49 Year
  Sex: Female

DRUGS (4)
  1. AVELOX [Suspect]
     Dates: start: 20050418
  2. HUMIBID DM [Concomitant]
  3. HYDROCHLOROTHIAZIDE [Concomitant]
  4. ZYRTEC [Concomitant]

REACTIONS (12)
  - ASTHENIA [None]
  - BLOOD PRESSURE [None]
  - DIZZINESS [None]
  - FEELING COLD [None]
  - HYPERSENSITIVITY [None]
  - HYPERTENSION [None]
  - ORTHOSTATIC HYPOTENSION [None]
  - PARAESTHESIA [None]
  - PARAESTHESIA ORAL [None]
  - SINUS TACHYCARDIA [None]
  - SYNCOPE [None]
  - TACHYCARDIA [None]
